FAERS Safety Report 11647299 (Version 3)
Quarter: 2015Q4

REPORT INFORMATION
  Report Type: Spontaneous
  Country: GB (occurrence: GB)
  Receive Date: 20151021
  Receipt Date: 20151103
  Transmission Date: 20160304
  Serious: Yes (Hospitalization)
  Sender: FDA-Public Use
  Company Number: GB-TAKEDA-2015MPI006091

PATIENT

DRUGS (2)
  1. VELCADE [Suspect]
     Active Substance: BORTEZOMIB
     Indication: PLASMA CELL MYELOMA
     Dosage: 2.5 MG, 1/WEEK
     Route: 058
     Dates: start: 20141028, end: 20150130
  2. ACICLOVIR                          /00587302/ [Concomitant]
     Dosage: 400 MG, BID
     Route: 065

REACTIONS (5)
  - Fall [Recovered/Resolved]
  - Neuropathy peripheral [Unknown]
  - Autonomic neuropathy [Recovered/Resolved]
  - Drug ineffective [Recovered/Resolved]
  - Condition aggravated [Unknown]

NARRATIVE: CASE EVENT DATE: 20150130
